FAERS Safety Report 4748276-5 (Version None)
Quarter: 2005Q3

REPORT INFORMATION
  Report Type: 
  Country: None (occurrence: None)
  Receive Date: 20050815
  Receipt Date: 20050615
  Transmission Date: 20060218
  Serious: No
  Sender: FDA-Public Use
  Company Number: USA0506100772

PATIENT
  Age: 59 Year
  Sex: Male

DRUGS (4)
  1. CIALIS [Suspect]
     Dosage: 20 MG
  2. ALLOPURINOL [Concomitant]
  3. AMBIEN [Concomitant]
  4. LIPITOR [Concomitant]

REACTIONS (1)
  - DRY MOUTH [None]
